FAERS Safety Report 8542071-7 (Version None)
Quarter: 2012Q3

REPORT INFORMATION
  Report Type: 
  Country: None (occurrence: None)
  Receive Date: 20120726
  Receipt Date: 20111128
  Transmission Date: 20120928
  Serious: No
  Sender: FDA-Public Use
  Company Number: US-ASTRAZENECA-2011SE63414

PATIENT
  Age: 55 Year
  Sex: Female

DRUGS (9)
  1. SEROQUEL XR [Suspect]
     Route: 048
     Dates: start: 20111108
  2. SEROQUEL XR [Suspect]
     Indication: POST-TRAUMATIC STRESS DISORDER
     Route: 048
     Dates: start: 20100901, end: 20111001
  3. SEROQUEL XR [Suspect]
     Indication: DEPRESSION
     Route: 048
     Dates: start: 20100901, end: 20111001
  4. SEROQUEL XR [Suspect]
     Route: 048
     Dates: start: 20111108
  5. RISPERIDONE [Suspect]
     Route: 065
  6. CYMBALTA [Suspect]
     Route: 065
     Dates: start: 20100101
  7. SEROQUEL XR [Suspect]
     Indication: BIPOLAR DISORDER
     Route: 048
     Dates: start: 20100901, end: 20111001
  8. SEROQUEL XR [Suspect]
     Route: 048
     Dates: start: 20111108
  9. DEPAKOTE [Suspect]
     Route: 065

REACTIONS (4)
  - BIPOLAR I DISORDER [None]
  - MALAISE [None]
  - BIPOLAR DISORDER [None]
  - DRUG DOSE OMISSION [None]
